FAERS Safety Report 12119527 (Version 1)
Quarter: 2016Q1

REPORT INFORMATION
  Report Type: Spontaneous
  Country: TW (occurrence: TW)
  Receive Date: 20160226
  Receipt Date: 20160226
  Transmission Date: 20160526
  Serious: Yes (Death)
  Sender: FDA-Public Use
  Company Number: TW-PFIZER INC-2016110741

PATIENT
  Age: 61 Year
  Sex: Female

DRUGS (4)
  1. ARCOXIA [Concomitant]
     Active Substance: ETORICOXIB
     Dosage: 60 MG, 1X/DAY AS NEEDED
  2. XELJANZ [Suspect]
     Active Substance: TOFACITINIB CITRATE
     Indication: RHEUMATOID ARTHRITIS
     Dosage: 5 MG, BID
     Route: 048
     Dates: start: 20150527
  3. SALAZINE [Concomitant]
     Active Substance: SULFASALAZINE
     Dosage: 500 MG, 1X/DAY
  4. ARHEUMA [Concomitant]
     Dosage: 20 MG, 1X/DAY

REACTIONS (1)
  - Death [Fatal]
